FAERS Safety Report 9671905 (Version 2)
Quarter: 2013Q4

REPORT INFORMATION
  Report Type: Spontaneous
  Country: IT (occurrence: None)
  Receive Date: 20131104
  Receipt Date: 20131211
  Transmission Date: 20140711
  Serious: Yes (Hospitalization)
  Sender: FDA-Public Use
  Company Number: AUR-APL-2013-08882

PATIENT
  Age: 57 Year
  Sex: Male

DRUGS (2)
  1. AMOXICILLIN+CLAVULANIC ACID [Suspect]
     Indication: PERIODONTAL DISEASE
  2. ATORVASTATIN (ATORVASTATIN) [Concomitant]

REACTIONS (6)
  - Dyspnoea [None]
  - Chest pain [None]
  - Electrocardiogram ST segment elevation [None]
  - Kounis syndrome [None]
  - Acute coronary syndrome [None]
  - Anaphylactic reaction [None]
